FAERS Safety Report 9351343 (Version 2)
Quarter: 2013Q2

REPORT INFORMATION
  Report Type: Spontaneous
  Country: VE (occurrence: VE)
  Receive Date: 20130617
  Receipt Date: 20130624
  Transmission Date: 20140414
  Serious: Yes (Other)
  Sender: FDA-Public Use
  Company Number: VE-PFIZER INC-2013180688

PATIENT
  Age: 68 Year
  Sex: Male

DRUGS (3)
  1. LIPITOR [Suspect]
     Indication: HYPERCHOLESTEROLAEMIA
     Dosage: 40 MG, DAILY
     Route: 048
     Dates: start: 1993
  2. DIOVAN HCT [Concomitant]
     Indication: HYPERTENSION
     Dosage: 1 DF (AT 160/12.5), DAILY
     Route: 048
     Dates: start: 20130619
  3. NIFEDIPINE [Concomitant]
     Indication: HYPERTENSION
     Dosage: 30 MG, DAILY
     Route: 048
     Dates: start: 20130619

REACTIONS (2)
  - Blood pressure increased [Recovered/Resolved]
  - Eye haemorrhage [Not Recovered/Not Resolved]
